FAERS Safety Report 8795863 (Version 1)
Quarter: 2012Q4

REPORT INFORMATION
  Report Type: 
  Country: PE (occurrence: PE)
  Receive Date: 20120920
  Receipt Date: 20120920
  Transmission Date: 20130627
  Serious: Yes (Hospitalization)
  Sender: FDA-Public Use
  Company Number: PE-PFIZER INC-2012232476

PATIENT
  Age: 93 Year
  Sex: Female

DRUGS (2)
  1. NORVASC [Suspect]
     Dosage: UNK
     Route: 048
  2. NEURONTIN [Suspect]
     Dosage: UNK
     Route: 048

REACTIONS (1)
  - Lung infection [Not Recovered/Not Resolved]
